FAERS Safety Report 15764441 (Version 1)
Quarter: 2018Q4

REPORT INFORMATION
  Report Type: Spontaneous
  Country: GB (occurrence: GB)
  Receive Date: 20181227
  Receipt Date: 20181227
  Transmission Date: 20190205
  Serious: Yes (Disabling, Other)
  Sender: FDA-Public Use
  Company Number: GB-DRREDDYS-GER/UKI/18/0106405

PATIENT
  Age: 24 Year
  Sex: Male

DRUGS (5)
  1. COLISTIN [Concomitant]
     Active Substance: COLISTIN
     Indication: PROPHYLAXIS
     Dosage: LONG-TERM NEBULISED
     Route: 045
  2. CIPROFLOXACIN. [Concomitant]
     Active Substance: CIPROFLOXACIN
     Indication: PROPHYLAXIS
     Route: 048
  3. TERBINAFINE. [Suspect]
     Active Substance: TERBINAFINE
     Indication: FUNGAL INFECTION
     Route: 048
  4. CASPOFUNGIN [Suspect]
     Active Substance: CASPOFUNGIN
     Indication: FUNGAL INFECTION
     Route: 042
  5. ITRACONAZOLE. [Suspect]
     Active Substance: ITRACONAZOLE
     Indication: FUNGAL INFECTION

REACTIONS (5)
  - Visual impairment [Unknown]
  - Neuropsychiatric symptoms [Unknown]
  - Diarrhoea [Unknown]
  - Drug intolerance [Unknown]
  - Drug ineffective [Unknown]
